FAERS Safety Report 8599879-1 (Version None)
Quarter: 2012Q3

REPORT INFORMATION
  Report Type: 
  Country: None (occurrence: None)
  Receive Date: 20120816
  Receipt Date: 20120531
  Transmission Date: 20120928
  Serious: No
  Sender: FDA-Public Use
  Company Number: US-AMGEN-USASP2012034379

PATIENT
  Age: 77 Year
  Sex: Male
  Weight: 95.3 kg

DRUGS (9)
  1. SIMVASTATIN [Concomitant]
     Dosage: UNK
  2. FUROSEMIDE [Concomitant]
     Dosage: UNK
  3. NPLATE [Suspect]
     Indication: IDIOPATHIC THROMBOCYTOPENIC PURPURA
     Dosage: 200 MUG, QWK
     Dates: start: 20101201
  4. NITRO-DUR [Concomitant]
     Dosage: UNK
  5. LOSARTAN POTASSIUM [Concomitant]
     Dosage: UNK
  6. COREG [Concomitant]
     Dosage: UNK
  7. TRAMADOL HCL [Concomitant]
     Dosage: UNK
  8. FLUTICASONE PROPIONATE [Concomitant]
     Dosage: UNK
  9. GLUCOVANCE [Concomitant]
     Dosage: UNK

REACTIONS (2)
  - INSOMNIA [None]
  - ARTHRITIS [None]
